FAERS Safety Report 11766832 (Version 2)
Quarter: 2015Q4

REPORT INFORMATION
  Report Type: Spontaneous
  Country: US (occurrence: US)
  Receive Date: 20151123
  Receipt Date: 20151229
  Transmission Date: 20160304
  Serious: Yes (Other)
  Sender: FDA-Public Use
  Company Number: US-BEH-2015055903

PATIENT
  Sex: Male
  Weight: 99 kg

DRUGS (33)
  1. TOBRAMYCIN. [Concomitant]
     Active Substance: TOBRAMYCIN
  2. BUDESONIDE. [Concomitant]
     Active Substance: BUDESONIDE
  3. ACYCLOVIR. [Concomitant]
     Active Substance: ACYCLOVIR
  4. HIZENTRA [Suspect]
     Active Substance: HUMAN IMMUNOGLOBULIN G
     Indication: IMMUNODEFICIENCY
     Dosage: 10 GM 50 ML VIAL
     Route: 058
     Dates: start: 20150112
  5. TAMSULOSIN [Concomitant]
     Active Substance: TAMSULOSIN
  6. MULTIVITAMINS [Concomitant]
     Active Substance: VITAMINS
  7. VITAMIN D [Concomitant]
     Active Substance: CHOLECALCIFEROL
  8. COLCHICINE. [Concomitant]
     Active Substance: COLCHICINE
  9. HIZENTRA [Suspect]
     Active Substance: HUMAN IMMUNOGLOBULIN G
     Indication: IMMUNODEFICIENCY
     Route: 058
  10. PROVENTIL HFA [Concomitant]
     Active Substance: ALBUTEROL SULFATE
  11. HIZENTRA [Suspect]
     Active Substance: HUMAN IMMUNOGLOBULIN G
     Indication: IMMUNODEFICIENCY
     Dosage: 10 GM 50 ML VIAL
     Route: 058
     Dates: start: 20150112
  12. HIZENTRA [Suspect]
     Active Substance: HUMAN IMMUNOGLOBULIN G
     Indication: IMMUNODEFICIENCY
     Dosage: 10 GM 50 ML VIAL
     Route: 058
     Dates: start: 20150112
  13. HIZENTRA [Suspect]
     Active Substance: HUMAN IMMUNOGLOBULIN G
     Indication: BRONCHITIS
     Dosage: 10 GM 50 ML VIAL
     Route: 058
     Dates: start: 20150112
  14. LIDOCAINE. [Concomitant]
     Active Substance: LIDOCAINE
  15. NEURONTIN [Concomitant]
     Active Substance: GABAPENTIN
  16. LOSARTAN POTASSIUM. [Concomitant]
     Active Substance: LOSARTAN POTASSIUM
  17. GABAPENTIN. [Concomitant]
     Active Substance: GABAPENTIN
  18. SODIUM CHLORIDE. [Concomitant]
     Active Substance: SODIUM CHLORIDE
  19. HIZENTRA [Suspect]
     Active Substance: HUMAN IMMUNOGLOBULIN G
     Indication: AUTOIMMUNE DISORDER
     Dosage: 10 GM 50 ML VIAL
     Route: 058
     Dates: start: 20150112
  20. ALBUTEROL SULFATE. [Concomitant]
     Active Substance: ALBUTEROL SULFATE
  21. FISH OIL [Concomitant]
     Active Substance: FISH OIL
  22. DIPHENHYDRAMINE. [Concomitant]
     Active Substance: DIPHENHYDRAMINE
  23. ASPIRIN. [Concomitant]
     Active Substance: ASPIRIN
  24. ALLOPURINOL. [Concomitant]
     Active Substance: ALLOPURINOL
  25. MUCINEX FAST-MAX CONGEST-COUGH [Concomitant]
  26. OTHER MINERAL SUPPLEMENTS [Concomitant]
  27. MORPHINE [Concomitant]
     Active Substance: MORPHINE
  28. OXYGEN. [Concomitant]
     Active Substance: OXYGEN
  29. ACETAMINOPHEN. [Concomitant]
     Active Substance: ACETAMINOPHEN
  30. EPIPEN [Concomitant]
     Active Substance: EPINEPHRINE
  31. FUROSEMIDE. [Concomitant]
     Active Substance: FUROSEMIDE
  32. AZITHROMYCIN [Concomitant]
     Active Substance: AZITHROMYCIN ANHYDROUS
  33. DALIRESP [Concomitant]
     Active Substance: ROFLUMILAST

REACTIONS (2)
  - Lung infection [Unknown]
  - Nasopharyngitis [Unknown]
